FAERS Safety Report 23614065 (Version 1)
Quarter: 2024Q1

REPORT INFORMATION
  Report Type: Report from Study
  Country: US (occurrence: US)
  Receive Date: 20240310
  Receipt Date: 20240310
  Transmission Date: 20240410
  Serious: Yes (Other)
  Sender: FDA-Public Use
  Company Number: US-ABBVIE-5663609

PATIENT
  Sex: Female

DRUGS (1)
  1. HUMIRA [Suspect]
     Active Substance: ADALIMUMAB
     Indication: Product used for unknown indication
     Route: 058
     Dates: start: 20230902

REACTIONS (6)
  - Loss of consciousness [Not Recovered/Not Resolved]
  - Injection site pain [Unknown]
  - Therapeutic product effect variable [Unknown]
  - Skin disorder [Unknown]
  - Injection site bruising [Unknown]
  - Rash papular [Unknown]
